FAERS Safety Report 24212637 (Version 1)
Quarter: 2024Q3

REPORT INFORMATION
  Report Type: Spontaneous
  Country: US (occurrence: US)
  Receive Date: 20240815
  Receipt Date: 20240815
  Transmission Date: 20241017
  Serious: No
  Sender: HIKMA
  Company Number: HIKM2405576

PATIENT

DRUGS (2)
  1. REGADENOSON [Suspect]
     Active Substance: REGADENOSON
     Indication: Acute myocardial infarction
     Dosage: 5 MILLILITER
     Route: 065
  2. REGADENOSON [Suspect]
     Active Substance: REGADENOSON
     Indication: Chest pain

REACTIONS (2)
  - Dyspnoea [Unknown]
  - Headache [Unknown]
